FAERS Safety Report 4638611-0 (Version None)
Quarter: 2005Q2

REPORT INFORMATION
  Report Type: 
  Country: None (occurrence: None)
  Receive Date: 20050415
  Receipt Date: 20050415
  Transmission Date: 20051028
  Serious: No
  Sender: FDA-Public Use
  Company Number: None

PATIENT
  Age: 59 Year
  Sex: Female

DRUGS (5)
  1. KETEK [Suspect]
     Indication: SINUSITIS
     Dosage: 800 MG PO QD
     Route: 048
     Dates: start: 20050304, end: 20050314
  2. TEQUIN [Suspect]
     Indication: SINUSITIS
     Dosage: 400MG PO QD
     Route: 048
     Dates: start: 20050207, end: 20050217
  3. PREDNISONE [Concomitant]
  4. NASACORT [Concomitant]
  5. DIFLUCAN [Concomitant]

REACTIONS (1)
  - THROMBOCYTOPENIA [None]
